FAERS Safety Report 10098819 (Version 3)
Quarter: 2014Q2

REPORT INFORMATION
  Report Type: Report from Study
  Country: AU (occurrence: AU)
  Receive Date: 20140423
  Receipt Date: 20140605
  Transmission Date: 20141212
  Serious: Yes (Hospitalization, Other)
  Sender: FDA-Public Use
  Company Number: PHHY2014AU049141

PATIENT
  Sex: Male

DRUGS (1)
  1. CLOZARIL [Suspect]
     Dosage: 350 MG
     Dates: start: 20010703

REACTIONS (5)
  - Diabetic foot [Unknown]
  - Skin ulcer [Unknown]
  - Limb injury [Unknown]
  - Wound [Unknown]
  - Diabetes mellitus [Unknown]
